FAERS Safety Report 9676285 (Version 1)
Quarter: 2013Q4

REPORT INFORMATION
  Report Type: Spontaneous
  Country: US (occurrence: US)
  Receive Date: 20131107
  Receipt Date: 20131107
  Transmission Date: 20140711
  Serious: Yes (Other)
  Sender: FDA-Public Use
  Company Number: US-ENDO PHARMACEUTICALS INC.-PERC20130147

PATIENT
  Sex: Female

DRUGS (1)
  1. PERCOCET 10MG/650MG [Suspect]
     Indication: PAIN
     Dosage: 10/650 MG
     Route: 048

REACTIONS (2)
  - Prescription form tampering [Unknown]
  - Drug abuse [Unknown]
